FAERS Safety Report 9212877 (Version 1)
Quarter: 2013Q1

REPORT INFORMATION
  Report Type: Spontaneous
  Country: US (occurrence: None)
  Receive Date: 20120824
  Receipt Date: 20120824
  Transmission Date: 20140127
  Serious: Yes (Hospitalization)
  Sender: FDA-Public Use
  Company Number: A-US2012-59428

PATIENT
  Age: 67 Year
  Sex: Female

DRUGS (4)
  1. VELETRI [Suspect]
     Indication: PULMONARY ARTERIAL HYPERTENSION
     Dosage: 11 NG/KG, PER MIN, INTRAVENOUS
     Route: 042
     Dates: start: 20111103
  2. SILDENAFIL (SILDENAFIL CITRATE) [Concomitant]
  3. ASPIRIN (ACETYLSALICYLIC ACID) [Concomitant]
  4. OXYGEN (OXYGEN) [Concomitant]

REACTIONS (3)
  - Chest pain [None]
  - Dyspnoea [None]
  - Palpitations [None]
